FAERS Safety Report 24929143 (Version 1)
Quarter: 2025Q1

REPORT INFORMATION
  Report Type: Spontaneous
  Country: US (occurrence: US)
  Receive Date: 20250205
  Receipt Date: 20250205
  Transmission Date: 20250409
  Serious: Yes (Other)
  Sender: MERCK
  Company Number: US-009507513-2502USA001023

PATIENT
  Age: 65 Year

DRUGS (1)
  1. BELSOMRA [Suspect]
     Active Substance: SUVOREXANT
     Indication: Insomnia
     Route: 048

REACTIONS (4)
  - Hallucination [Unknown]
  - Somnolence [Unknown]
  - Headache [Unknown]
  - Abnormal dreams [Unknown]
